FAERS Safety Report 17306794 (Version 1)
Quarter: 2020Q1

REPORT INFORMATION
  Report Type: Spontaneous
  Country: SE (occurrence: SE)
  Receive Date: 20200123
  Receipt Date: 20200123
  Transmission Date: 20200409
  Serious: Yes (Hospitalization)
  Sender: FDA-Public Use
  Company Number: SE-009507513-2001SWE007341

PATIENT
  Age: 78 Year
  Sex: Female

DRUGS (5)
  1. SERTRALINE HYDROCHLORIDE. [Suspect]
     Active Substance: SERTRALINE HYDROCHLORIDE
     Indication: DEPRESSION
     Dosage: DAILY DOSE: 50 MILLIGRAM
     Route: 048
     Dates: start: 20021016, end: 20021022
  2. AMILORIDE HYDROCHLORIDE (+) HYDROCHLOROTHIAZIDE [Suspect]
     Active Substance: AMILORIDE HYDROCHLORIDE\HYDROCHLOROTHIAZIDE
     Indication: ILL-DEFINED DISORDER
     Route: 048
     Dates: end: 20021022
  3. MIRTAZAPINE. [Suspect]
     Active Substance: MIRTAZAPINE
     Indication: DEPRESSION
     Dosage: DAILY DOSE: 30 MILLIGRAM
     Route: 048
  4. SIMVASTATIN. [Concomitant]
     Active Substance: SIMVASTATIN
     Route: 048
     Dates: start: 20020331
  5. OXAZEPAM. [Concomitant]
     Active Substance: OXAZEPAM
     Route: 048
     Dates: start: 198902

REACTIONS (7)
  - Fall [Unknown]
  - Hypertension [Unknown]
  - Amnesia [Unknown]
  - Hypersomnia [Unknown]
  - Blood potassium decreased [Recovered/Resolved]
  - Hyponatraemia [Recovered/Resolved]
  - Fatigue [Unknown]

NARRATIVE: CASE EVENT DATE: 200210
